FAERS Safety Report 8496583-5 (Version None)
Quarter: 2012Q3

REPORT INFORMATION
  Report Type: 
  Country: None (occurrence: None)
  Receive Date: 20120709
  Receipt Date: 20120626
  Transmission Date: 20120928
  Serious: Yes (Other)
  Sender: FDA-Public Use
  Company Number: JP-SANOFI-AVENTIS-2012SA038139

PATIENT
  Age: 69 Year
  Sex: Male
  Weight: 55 kg

DRUGS (2)
  1. ALLEGRA [Suspect]
     Route: 048
     Dates: start: 20120210, end: 20120424
  2. MINOCYCLINE HYDROCHLORIDE [Concomitant]
     Indication: PERIODONTITIS
     Route: 048
     Dates: start: 20120423, end: 20120424

REACTIONS (3)
  - DECREASED APPETITE [None]
  - CONJUNCTIVAL HYPERAEMIA [None]
  - MALAISE [None]
